FAERS Safety Report 18799591 (Version 1)
Quarter: 2021Q1

REPORT INFORMATION
  Report Type: Spontaneous
  Country: US (occurrence: US)
  Receive Date: 20210127
  Receipt Date: 20210127
  Transmission Date: 20210419
  Serious: Yes (Hospitalization)
  Sender: FDA-Public Use
  Company Number: None

PATIENT
  Age: 86 Year
  Sex: Male

DRUGS (7)
  1. OCTREOTIDE 200MCG/ML MDV 14.5ML [Suspect]
     Active Substance: OCTREOTIDE
     Indication: ARTERIOVENOUS MALFORMATION
     Route: 058
     Dates: start: 20201009
  2. BROVANA NEB [Concomitant]
  3. CEFDINIR. [Concomitant]
     Active Substance: CEFDINIR
  4. CIPROFLOXACN [Concomitant]
     Active Substance: CIPROFLOXACIN
  5. CHLORHEX GLU [Concomitant]
     Active Substance: CHLORHEXIDINE GLUCONATE
  6. CLINDAMYCIN. [Concomitant]
     Active Substance: CLINDAMYCIN
  7. ALFUZOSIN [Concomitant]
     Active Substance: ALFUZOSIN

REACTIONS (3)
  - Product availability issue [None]
  - Transfusion [None]
  - Atrial fibrillation [None]

NARRATIVE: CASE EVENT DATE: 20210127
